FAERS Safety Report 16760404 (Version 2)
Quarter: 2019Q4

REPORT INFORMATION
  Report Type: Spontaneous
  Country: US (occurrence: US)
  Receive Date: 20190830
  Receipt Date: 20191004
  Transmission Date: 20200122
  Serious: No
  Sender: FDA-Public Use
  Company Number: US-PFIZER INC-2019372679

PATIENT
  Age: 56 Year
  Sex: Female

DRUGS (7)
  1. CEFUROXIME AXETIL. [Suspect]
     Active Substance: CEFUROXIME AXETIL
     Dosage: UNK
  2. AMLODIPINE BESILATE [Suspect]
     Active Substance: AMLODIPINE BESYLATE
     Dosage: UNK
  3. PNEUMOCOCCAL POLYSACCHARIDE VACCINE, 23-VALENT [Suspect]
     Active Substance: PNEUMOCOCCAL VACCINE, POLYVALENT 23
     Dosage: UNK
  4. MIRTAZAPINE. [Suspect]
     Active Substance: MIRTAZAPINE
     Dosage: UNK
  5. CEFUROXIME. [Suspect]
     Active Substance: CEFUROXIME
     Dosage: UNK
  6. MILNACIPRAN [Suspect]
     Active Substance: MILNACIPRAN
     Dosage: UNK
  7. PIOGLITAZONE. [Suspect]
     Active Substance: PIOGLITAZONE
     Dosage: UNK

REACTIONS (1)
  - Drug hypersensitivity [Unknown]
